FAERS Safety Report 20791766 (Version 2)
Quarter: 2022Q3

REPORT INFORMATION
  Report Type: Report from Study
  Country: US (occurrence: US)
  Receive Date: 20220505
  Receipt Date: 20220823
  Transmission Date: 20221026
  Serious: No
  Sender: FDA-Public Use
  Company Number: US-NOVARTISTESTPH-NVSC2022US103648

PATIENT
  Sex: Female

DRUGS (1)
  1. COSENTYX [Suspect]
     Active Substance: SECUKINUMAB
     Indication: Psoriasis
     Dosage: 150 MG, QW FOR 5 WEEKS (THEN ONCE EVERY 4 WEEKS)
     Route: 058
     Dates: start: 20220406

REACTIONS (3)
  - Injection site erythema [Recovered/Resolved]
  - Product use issue [Recovered/Resolved]
  - Injection site extravasation [Recovered/Resolved]
